FAERS Safety Report 22232105 (Version 1)
Quarter: 2023Q2

REPORT INFORMATION
  Report Type: Spontaneous
  Country: US (occurrence: US)
  Receive Date: 20230420
  Receipt Date: 20230420
  Transmission Date: 20230722
  Serious: No
  Sender: FDA-Public Use
  Company Number: US-PTx-2022000126

PATIENT
  Sex: Female

DRUGS (1)
  1. LEUKINE [Suspect]
     Active Substance: SARGRAMOSTIM
     Indication: Product used for unknown indication
     Dosage: 250 MCG MIX 1 VIAL WITH 1 ML STERILE WATER + INJECT 0.14 ML (35 MCG TOTAL) UNDER THE SKIN DAILY
     Route: 058

REACTIONS (6)
  - Adverse event [Unknown]
  - White blood cell count increased [Unknown]
  - COVID-19 [Unknown]
  - Respiratory syncytial virus infection [Unknown]
  - Product packaging issue [Unknown]
  - Product temperature excursion issue [Unknown]
